FAERS Safety Report 23645478 (Version 1)
Quarter: 2024Q1

REPORT INFORMATION
  Report Type: Report from Study
  Country: US (occurrence: US)
  Receive Date: 20240319
  Receipt Date: 20240319
  Transmission Date: 20240410
  Serious: Yes (Other)
  Sender: FDA-Public Use
  Company Number: US-ABBVIE-5358447

PATIENT
  Sex: Male

DRUGS (3)
  1. HUMIRA [Suspect]
     Active Substance: ADALIMUMAB
     Indication: Crohn^s disease
     Dosage: START DATE TEXT: 10-11 YEARS AGO ?STOP DATE TEXT: 10-11 YEARS AGO ?DURATION TEXT: 2-3 YEARS
     Route: 058
     Dates: start: 2013
  2. REMICADE [Suspect]
     Active Substance: INFLIXIMAB
     Indication: Product used for unknown indication
     Route: 065
  3. ENTYVIO [Suspect]
     Active Substance: VEDOLIZUMAB
     Indication: Product used for unknown indication
     Route: 065

REACTIONS (4)
  - Intestinal stenosis [Unknown]
  - Drug ineffective [Not Recovered/Not Resolved]
  - Fistula [Unknown]
  - Frequent bowel movements [Not Recovered/Not Resolved]
